FAERS Safety Report 14213162 (Version 2)
Quarter: 2018Q1

REPORT INFORMATION
  Report Type: Report from Study
  Country: DE (occurrence: DE)
  Receive Date: 20171122
  Receipt Date: 20180306
  Transmission Date: 20180508
  Serious: Yes (Death, Hospitalization)
  Sender: FDA-Public Use
  Company Number: DE-ROCHE-1490775

PATIENT
  Age: 65 Year
  Sex: Male
  Weight: 60 kg

DRUGS (15)
  1. BEVACIZUMAB. [Suspect]
     Active Substance: BEVACIZUMAB
     Route: 042
     Dates: start: 20131219
  2. IRINOTECAN [Concomitant]
     Active Substance: IRINOTECAN
     Indication: COLORECTAL CANCER
     Dosage: SUBSEQUENT DOSES ON 11/JUL/2013, 01/AUG/2013.
     Route: 042
     Dates: start: 20130704
  3. IRINOTECAN [Concomitant]
     Active Substance: IRINOTECAN
     Dosage: SUBSEQUENT DOSES ON 15/AUG/2013, 22/AUG/2013, 05/SEP/2013, 12/SEP/2013, 26/SEP/2013, 17/OCT/2013, 24
     Route: 042
     Dates: start: 20130725
  4. FORMOTEROL [Concomitant]
     Active Substance: FORMOTEROL
     Indication: BRONCHOSPASM
  5. XELODA [Suspect]
     Active Substance: CAPECITABINE
     Indication: COLORECTAL CANCER
     Dosage: FOR 14 DAYS OF A 3 WEEK CYCLE
     Route: 048
     Dates: start: 20130314, end: 20130704
  6. ASPIRIN. [Concomitant]
     Active Substance: ASPIRIN
     Indication: HYPERTENSION
  7. XELODA [Suspect]
     Active Substance: CAPECITABINE
     Dosage: FOR 14 DAYS OF A 3 WEEK CYCLE
     Route: 048
     Dates: start: 20130725, end: 20131219
  8. BUDESONID [Concomitant]
     Active Substance: BUDESONIDE
     Indication: CHRONIC OBSTRUCTIVE PULMONARY DISEASE
  9. NEUPOGEN [Suspect]
     Active Substance: FILGRASTIM
     Indication: LEUKOPENIA
     Route: 065
     Dates: start: 20130912, end: 20130912
  10. ALLOPURINOL. [Concomitant]
     Active Substance: ALLOPURINOL
     Indication: HYPERURICAEMIA
  11. NOVAMINSULFON [Concomitant]
     Active Substance: METAMIZOLE
     Indication: MUSCULOSKELETAL PAIN
     Route: 065
     Dates: start: 20130926
  12. BEVACIZUMAB. [Suspect]
     Active Substance: BEVACIZUMAB
     Indication: COLORECTAL CANCER METASTATIC
     Route: 042
     Dates: start: 20130314
  13. RAMIPRIL. [Concomitant]
     Active Substance: RAMIPRIL
     Indication: HYPERTENSION
  14. KALIUMIODID [Concomitant]
     Active Substance: POTASSIUM IODIDE
  15. ZOLEDRONIC ACID [Concomitant]
     Active Substance: ZOLEDRONIC ACID
     Indication: METASTASES TO BONE
     Route: 065
     Dates: start: 20130628, end: 20131219

REACTIONS (4)
  - Malignant neoplasm progression [Fatal]
  - Oesophageal haemorrhage [Fatal]
  - Erosive oesophagitis [Fatal]
  - Tracheal haemorrhage [Fatal]

NARRATIVE: CASE EVENT DATE: 20140101
